FAERS Safety Report 5059996-X (Version None)
Quarter: 2006Q2

REPORT INFORMATION
  Report Type: 
  Country: None (occurrence: None)
  Receive Date: 20060630
  Receipt Date: 20060524
  Transmission Date: 20061013
  Serious: Yes (Hospitalization)
  Sender: FDA-Public Use
  Company Number: A03200603318

PATIENT
  Age: 72 Year
  Sex: Male
  Weight: 70.7611 kg

DRUGS (2)
  1. AMBIEN [Suspect]
     Indication: INSOMNIA
     Dosage: 12.5 MG HS - ORAL
     Route: 048
     Dates: start: 20060310, end: 20060316
  2. DOXAZOSIN MESYLATE [Concomitant]

REACTIONS (3)
  - DRUG WITHDRAWAL SYNDROME [None]
  - DYSPNOEA [None]
  - INAPPROPRIATE AFFECT [None]
